FAERS Safety Report 7706741-2 (Version None)
Quarter: 2011Q3

REPORT INFORMATION
  Report Type: 
  Country: None (occurrence: None)
  Receive Date: 20110824
  Receipt Date: 20110811
  Transmission Date: 20111222
  Serious: Yes (Hospitalization)
  Sender: FDA-Public Use
  Company Number: US-US-EMD SERONO, INC.-7076522

PATIENT
  Sex: Female
  Weight: 86 kg

DRUGS (1)
  1. REBIF [Suspect]
     Indication: MULTIPLE SCLEROSIS
     Route: 058
     Dates: start: 20051121

REACTIONS (6)
  - DEHYDRATION [None]
  - MULTIPLE SCLEROSIS RELAPSE [None]
  - PYREXIA [None]
  - BLOOD POTASSIUM DECREASED [None]
  - INFLUENZA LIKE ILLNESS [None]
  - NAUSEA [None]
